FAERS Safety Report 17287194 (Version 1)
Quarter: 2020Q1

REPORT INFORMATION
  Report Type: Spontaneous
  Country: ES (occurrence: ES)
  Receive Date: 20200120
  Receipt Date: 20200120
  Transmission Date: 20200409
  Serious: Yes (Death, Hospitalization, Other)
  Sender: FDA-Public Use
  Company Number: ES-CHEPLA-C20200265

PATIENT
  Age: 30 Year
  Sex: Male

DRUGS (17)
  1. GANCYCLOVIR [Suspect]
     Active Substance: GANCICLOVIR
     Dosage: INTRAVITREAL TREATMENT
     Route: 031
  2. POSOCONAZOLE [Suspect]
     Active Substance: POSACONAZOLE
     Dosage: 300 MG/DAY
     Route: 065
  3. ACYCLOVIR. [Suspect]
     Active Substance: ACYCLOVIR
     Indication: ANTIVIRAL PROPHYLAXIS
     Dosage: UNKNOWN
     Route: 042
  4. FOSCARNET [Suspect]
     Active Substance: FOSCARNET
     Dosage: INTRAVITREAL TREATMENT
     Route: 031
  5. BUDESONIDE. [Suspect]
     Active Substance: BUDESONIDE
     Indication: GRAFT VERSUS HOST DISEASE
     Dosage: UNKNOWN
     Route: 065
     Dates: start: 20170801
  6. VORICONAZOLE. [Suspect]
     Active Substance: VORICONAZOLE
     Dosage: SYSTEMIC AND INTRAVITREAL VORICONAZOLE
     Route: 031
  7. PREDNISONE. [Suspect]
     Active Substance: PREDNISONE
     Indication: GRAFT VERSUS HOST DISEASE
     Dosage: UNKNOWN
     Route: 065
     Dates: start: 20170801
  8. COTRIMOXAZOL [Suspect]
     Active Substance: SULFAMETHOXAZOLE\TRIMETHOPRIM
     Dosage: 400 + 80 MG, MONDAY, WEDNESDAY AND FRIDAY
     Route: 065
  9. FORTASEC [Suspect]
     Active Substance: LOPERAMIDE HYDROCHLORIDE
  10. AMPHOTERICIN B. [Concomitant]
     Active Substance: AMPHOTERICIN B
  11. AMPHOTERICIN B INTRAVITREAL [Suspect]
     Active Substance: AMPHOTERICIN B
     Dosage: INTRAVITREAL TREATMENT
     Route: 031
  12. TACROLIMUS. [Suspect]
     Active Substance: TACROLIMUS
     Indication: GRAFT VERSUS HOST DISEASE
     Dosage: UNKNOWN
     Route: 065
     Dates: start: 20170801
  13. INSULIN [Suspect]
     Active Substance: INSULIN NOS
  14. CIPROFLOXACIN. [Suspect]
     Active Substance: CIPROFLOXACIN
     Indication: BRONCHOPULMONARY ASPERGILLOSIS
  15. RUXOLITINIB [Suspect]
     Active Substance: RUXOLITINIB
     Indication: GRAFT VERSUS HOST DISEASE
     Dosage: UNKNOWN
     Route: 065
     Dates: start: 20170801
  16. OMEPRAZOLE. [Suspect]
     Active Substance: OMEPRAZOLE
     Dosage: 20 MG/DAY
     Route: 065
  17. CEFEPIM [Suspect]
     Active Substance: CEFEPIME HYDROCHLORIDE
     Indication: BRONCHOPULMONARY ASPERGILLOSIS

REACTIONS (7)
  - Cerebral haemorrhage [Fatal]
  - Condition aggravated [Unknown]
  - Product use issue [Unknown]
  - Central nervous system lesion [Not Recovered/Not Resolved]
  - Aspergillus infection [Not Recovered/Not Resolved]
  - Intracranial mass [Unknown]
  - Brain herniation [Unknown]
